FAERS Safety Report 4935660-X (Version None)
Quarter: 2006Q1

REPORT INFORMATION
  Report Type: 
  Country: None (occurrence: None)
  Receive Date: 20060302
  Receipt Date: 20060213
  Transmission Date: 20060701
  Serious: Yes (Hospitalization)
  Sender: FDA-Public Use
  Company Number: US200602003397

PATIENT
  Age: 56 Year
  Sex: Female

DRUGS (3)
  1. FORTEO [Suspect]
     Dosage: 20 UG, DAILY (1/D), UNK
     Dates: start: 20040714
  2. FORTEO [Concomitant]
  3. BEXTRA    /UNK/(VALDECOXIB) [Concomitant]

REACTIONS (4)
  - ASTHENIA [None]
  - HEART RATE INCREASED [None]
  - MALAISE [None]
  - SKIN NODULE [None]
